FAERS Safety Report 18115621 (Version 2)
Quarter: 2020Q3

REPORT INFORMATION
  Report Type: Spontaneous
  Country: JP (occurrence: JP)
  Receive Date: 20200805
  Receipt Date: 20200828
  Transmission Date: 20201103
  Serious: Yes (Other)
  Sender: FDA-Public Use
  Company Number: JP-JNJFOC-20200746112

PATIENT
  Age: 7 Decade
  Sex: Male

DRUGS (7)
  1. ONEDURO [Suspect]
     Active Substance: FENTANYL
     Indication: CANCER PAIN
     Dosage: 12.5MCG/HR
     Route: 062
  2. ACETAMINOPHEN. [Concomitant]
     Active Substance: ACETAMINOPHEN
     Indication: CANCER PAIN
     Route: 048
  3. FENTANYL. [Suspect]
     Active Substance: FENTANYL
     Indication: CANCER PAIN
     Dosage: 12.5MCG/HR
     Route: 062
  4. LOXOPROFEN SODIUM HYDRATE [Concomitant]
     Active Substance: LOXOPROFEN SODIUM DIHYDRATE
     Indication: CANCER PAIN
     Route: 048
  5. FENTANYL CITRATE. [Interacting]
     Active Substance: FENTANYL CITRATE
     Indication: CANCER PAIN
     Route: 048
  6. OXYCODONE HYDROCHLORIDE. [Concomitant]
     Active Substance: OXYCODONE HYDROCHLORIDE
     Indication: CANCER PAIN
     Route: 048
  7. ONEDURO [Interacting]
     Active Substance: FENTANYL
     Indication: CANCER PAIN
     Dosage: 25MCG/HR
     Route: 062

REACTIONS (5)
  - Apnoea [Unknown]
  - Off label use [Unknown]
  - Therapy naive [Unknown]
  - Inappropriate schedule of product administration [Unknown]
  - Potentiating drug interaction [Unknown]
